FAERS Safety Report 5736093-9 (Version None)
Quarter: 2008Q2

REPORT INFORMATION
  Report Type: 
  Country: None (occurrence: None)
  Receive Date: 20080509
  Receipt Date: 20080416
  Transmission Date: 20081010
  Serious: Yes (Other)
  Sender: FDA-Public Use
  Company Number: 37349

PATIENT
  Age: 26 Year
  Sex: Female

DRUGS (1)
  1. PHISODERM [Suspect]
     Indication: ACNE
     Dosage: TOPICAL 1X/DAY
     Dates: start: 20080405, end: 20080407

REACTIONS (4)
  - FOETAL HEART RATE ABNORMAL [None]
  - HAEMORRHAGE [None]
  - MUSCLE SPASMS [None]
  - STILLBIRTH [None]
